FAERS Safety Report 6578136-9 (Version None)
Quarter: 2010Q1

REPORT INFORMATION
  Report Type: 
  Country: None (occurrence: None)
  Receive Date: 20100211
  Receipt Date: 20100205
  Transmission Date: 20100710
  Serious: Yes (Death, Other)
  Sender: FDA-Public Use
  Company Number: BR-PFIZER INC-2010015596

PATIENT
  Sex: Male

DRUGS (1)
  1. REVATIO [Suspect]
     Dosage: 20 MG, UNK
     Route: 048

REACTIONS (4)
  - DEATH [None]
  - SURGERY [None]
  - VEIN DISORDER [None]
  - VENOUS OCCLUSION [None]
